FAERS Safety Report 9838177 (Version 1)
Quarter: 2014Q1

REPORT INFORMATION
  Report Type: Report from Study
  Country: AT (occurrence: AT)
  Receive Date: 20140123
  Receipt Date: 20140123
  Transmission Date: 20141002
  Serious: Yes (Other)
  Sender: FDA-Public Use
  Company Number: AT-ROCHE-1337651

PATIENT
  Age: 76 Year
  Sex: Female
  Weight: 84 kg

DRUGS (4)
  1. RITUXIMAB [Suspect]
     Indication: MANTLE CELL LYMPHOMA
     Route: 042
  2. RITUXIMAB [Suspect]
     Indication: NON-HODGKIN^S LYMPHOMA
  3. PARACETAMOL [Concomitant]
  4. RANITIDIN [Concomitant]

REACTIONS (1)
  - Neoplasm recurrence [Unknown]
